FAERS Safety Report 22880483 (Version 3)
Quarter: 2023Q4

REPORT INFORMATION
  Report Type: Spontaneous
  Country: DE (occurrence: DE)
  Receive Date: 20230829
  Receipt Date: 20231004
  Transmission Date: 20240110
  Serious: Yes (Death, Hospitalization, Other)
  Sender: FDA-Public Use
  Company Number: DE-PEI-202300034074

PATIENT
  Age: 37 Year
  Sex: Female

DRUGS (1)
  1. TECARTUS [Suspect]
     Active Substance: BREXUCABTAGENE AUTOLEUCEL
     Indication: Mantle cell lymphoma recurrent
     Route: 042
     Dates: start: 20230814

REACTIONS (3)
  - Immune effector cell-associated neurotoxicity syndrome [Fatal]
  - Cytokine release syndrome [Fatal]
  - Brain oedema [Fatal]

NARRATIVE: CASE EVENT DATE: 20230801
